FAERS Safety Report 24575931 (Version 1)
Quarter: 2024Q4

REPORT INFORMATION
  Report Type: Spontaneous
  Country: RO (occurrence: RO)
  Receive Date: 20241104
  Receipt Date: 20241104
  Transmission Date: 20250115
  Serious: Yes (Other)
  Sender: MYLAN
  Company Number: RO-MYLANLABS-2024M1098167

PATIENT
  Age: 68 Year
  Sex: Male

DRUGS (3)
  1. VANCOMYCIN [Suspect]
     Active Substance: VANCOMYCIN
     Indication: Post procedural sepsis
     Dosage: 4 GRAM
     Route: 065
  2. VANCOMYCIN [Suspect]
     Active Substance: VANCOMYCIN
     Dosage: 1 GRAM, BID
     Route: 042
  3. CEFTRIAXONE [Suspect]
     Active Substance: CEFTRIAXONE
     Indication: Post procedural sepsis
     Dosage: 2 GRAM, QD
     Route: 065

REACTIONS (3)
  - Renal failure [Unknown]
  - Leukopenia [Unknown]
  - Neutropenia [Unknown]
